FAERS Safety Report 14776779 (Version 1)
Quarter: 2018Q2

REPORT INFORMATION
  Report Type: Report from Study
  Country: DE (occurrence: DE)
  Receive Date: 20180419
  Receipt Date: 20180419
  Transmission Date: 20180711
  Serious: Yes (Other)
  Sender: FDA-Public Use
  Company Number: DE-ACCORD-065706

PATIENT
  Age: 72 Year
  Sex: Male
  Weight: 66 kg

DRUGS (15)
  1. OXALIPLATIN. [Suspect]
     Active Substance: OXALIPLATIN
     Indication: COLORECTAL CANCER
     Route: 042
     Dates: start: 20160307
  2. AVASTIN [Suspect]
     Active Substance: BEVACIZUMAB
     Indication: COLORECTAL CANCER
     Dosage: ALSO RECEIVED ON 21-MAY-2016?DOSE: 495/3WEEK ON 04-OCT-2016
     Route: 042
     Dates: start: 20160521
  3. ALIZAPRIDE [Concomitant]
     Active Substance: ALIZAPRIDE
     Route: 042
     Dates: start: 20160307, end: 20160517
  4. APREPITANT. [Concomitant]
     Active Substance: APREPITANT
     Dosage: ALSO RECEIVED AT DOSE OF 80 MG DAILY FROM 08-MAR-2016 TO 09-MAR-2016
     Route: 048
     Dates: start: 20160307, end: 20160307
  5. FOLINIC ACID [Concomitant]
     Active Substance: LEUCOVORIN
     Dates: start: 20161004
  6. DEXAMETHASONE. [Concomitant]
     Active Substance: DEXAMETHASONE
     Dates: start: 20160307
  7. NOVAMINSULFON [Concomitant]
     Active Substance: METAMIZOLE
     Indication: PAIN
     Route: 048
     Dates: start: 201602
  8. CANDESARTAN. [Concomitant]
     Active Substance: CANDESARTAN
     Indication: HYPERTENSION
     Dosage: DOSE: 2 (UNIT UNSPECIFIED) (8/4 MG)
     Route: 048
     Dates: start: 2014
  9. FOLINIC ACID [Concomitant]
     Active Substance: LEUCOVORIN
     Indication: COLORECTAL CANCER
     Dosage: ALSO RECEIVED PER 3 WEEK
     Route: 042
     Dates: start: 20160307, end: 20160502
  10. DUTASTERIDE. [Concomitant]
     Active Substance: DUTASTERIDE
     Indication: BENIGN PROSTATIC HYPERPLASIA
     Route: 048
  11. GRANISETRON [Concomitant]
     Active Substance: GRANISETRON
     Route: 042
     Dates: start: 20160307
  12. APREPITANT. [Concomitant]
     Active Substance: APREPITANT
     Dates: start: 20160308, end: 20160309
  13. FLUOROURACIL. [Suspect]
     Active Substance: FLUOROURACIL
     Indication: COLORECTAL CANCER
     Dosage: ALSO RECEIVED AT DOSE OF 5300 MG/2WEEK ON 07-MAR-2016
     Route: 042
     Dates: start: 20161004
  14. DEXAMETHASONE. [Concomitant]
     Active Substance: DEXAMETHASONE
     Dosage: ALSO RECEIVED ON 07-MAR-2016
     Route: 042
     Dates: start: 20170116
  15. ATROPINE. [Concomitant]
     Active Substance: ATROPINE
     Route: 042
     Dates: start: 20170116

REACTIONS (2)
  - Proteinuria [Not Recovered/Not Resolved]
  - Hypertension [Not Recovered/Not Resolved]

NARRATIVE: CASE EVENT DATE: 20160502
